FAERS Safety Report 5956663-2 (Version None)
Quarter: 2008Q4

REPORT INFORMATION
  Report Type: 
  Country: None (occurrence: None)
  Receive Date: 20081118
  Receipt Date: 20081103
  Transmission Date: 20090506
  Serious: Yes (Other)
  Sender: FDA-Public Use
  Company Number: US-ASTRAZENECA-2008AP08755

PATIENT
  Age: 84 Year
  Sex: Female

DRUGS (5)
  1. ZESTRIL [Suspect]
     Indication: HYPERTENSION
     Route: 048
  2. CHLORTHALIDONE [Concomitant]
  3. DIPYRIDAMOLE [Concomitant]
  4. ASPIRIN [Concomitant]
  5. ULTRA-TURNS [Concomitant]

REACTIONS (3)
  - CHEST PAIN [None]
  - DRUG INTOLERANCE [None]
  - DYSPNOEA [None]
